FAERS Safety Report 21327796 (Version 1)
Quarter: 2022Q3

REPORT INFORMATION
  Report Type: Spontaneous
  Country: SG (occurrence: None)
  Receive Date: 20220913
  Receipt Date: 20220913
  Transmission Date: 20221027
  Serious: Yes (Hospitalization, Other)
  Sender: FDA-Public Use
  Company Number: SG-ROCHE-3175624

PATIENT
  Age: 80 Year
  Sex: Female

DRUGS (18)
  1. RITUXIMAB [Suspect]
     Active Substance: RITUXIMAB
     Indication: Product used for unknown indication
     Route: 065
  2. CYCLOPHOSPHAMIDE [Suspect]
     Active Substance: CYCLOPHOSPHAMIDE
     Indication: Product used for unknown indication
     Route: 065
  3. DOXORUBICIN [Suspect]
     Active Substance: DOXORUBICIN
     Indication: Product used for unknown indication
     Route: 065
  4. VINCRISTINE [Suspect]
     Active Substance: VINCRISTINE
     Indication: Product used for unknown indication
     Route: 065
  5. PREDNISOLONE [Suspect]
     Active Substance: PREDNISOLONE
     Indication: Product used for unknown indication
     Route: 065
  6. GEMCITABINE [Suspect]
     Active Substance: GEMCITABINE
     Indication: Product used for unknown indication
     Route: 065
  7. OXALIPLATIN [Suspect]
     Active Substance: OXALIPLATIN
     Indication: Product used for unknown indication
     Route: 065
  8. ACALABRUTINIB [Concomitant]
     Active Substance: ACALABRUTINIB
     Indication: Diffuse large B-cell lymphoma
  9. ACALABRUTINIB [Concomitant]
     Active Substance: ACALABRUTINIB
  10. ACYCLOVIR [Concomitant]
     Active Substance: ACYCLOVIR
  11. COTRIMOXAZOLE [Concomitant]
     Active Substance: SULFAMETHOXAZOLE\TRIMETHOPRIM
  12. AMLODIPINE [Concomitant]
     Active Substance: AMLODIPINE BESYLATE
  13. CALCITRIOL [Concomitant]
     Active Substance: CALCITRIOL
  14. CALCIUM CARBONATE [Concomitant]
     Active Substance: CALCIUM CARBONATE
  15. CHOLECALCIFEROL [Concomitant]
     Active Substance: CHOLECALCIFEROL
  16. DENOSUMAB [Concomitant]
     Active Substance: DENOSUMAB
  17. HYDROCORTISONE [Concomitant]
     Active Substance: HYDROCORTISONE
  18. MELATONIN [Concomitant]
     Active Substance: MELATONIN

REACTIONS (9)
  - Disease progression [Unknown]
  - Fatigue [Unknown]
  - Rash [Unknown]
  - Lip swelling [Unknown]
  - Swelling face [Unknown]
  - Conjunctivitis [Unknown]
  - Dermatitis [Unknown]
  - Vulvar erosion [Unknown]
  - Epidermal necrosis [Unknown]
